FAERS Safety Report 10663784 (Version 3)
Quarter: 2015Q1

REPORT INFORMATION
  Report Type: Spontaneous
  Country: US (occurrence: None)
  Receive Date: 20141217
  Receipt Date: 20150116
  Transmission Date: 20150720
  Serious: Yes (Death, Hospitalization)
  Sender: FDA-Public Use
  Company Number: 2014-US-016456

PATIENT
  Age: 61 Year
  Sex: Male
  Weight: 112 kg

DRUGS (11)
  1. PRIALT [Suspect]
     Active Substance: ZICONOTIDE ACETATE
     Indication: MUSCLE SPASTICITY
     Route: 037
  2. MORPHINE SULFATE (MORPHINE SULFATE) [Suspect]
     Active Substance: MORPHINE SULFATE
  3. OXYCODONE HCL (OXYCODONE HYDROCHLORIDE) [Concomitant]
     Active Substance: OXYCODONE HYDROCHLORIDE
  4. BACLOFEN (BACLOFEN) INJECTION [Suspect]
     Active Substance: BACLOFEN
     Indication: SPINAL CORD INJURY
     Route: 037
  5. ALBUTEROL (SALBUTAMOL SULFATE) [Concomitant]
  6. OXYMORPHONE HYDROCHLORIDE ENDO GENERIC PRODUC (OXYMORPHONE HYDROCHLORIDE) [Concomitant]
  7. PRIALT [Suspect]
     Active Substance: ZICONOTIDE ACETATE
     Indication: SPINAL CORD INJURY
     Route: 037
  8. BACLOFEN (BACLOFEN) INJECTION [Suspect]
     Active Substance: BACLOFEN
     Indication: MUSCLE SPASTICITY
     Route: 037
  9. KETOROLAC TROMETHALINE (KETOROLAC TROMETHAMINE) [Concomitant]
  10. IPRATROPIUM BROMIDE (IPRATROPIUM BROMIDE) [Concomitant]
  11. COUMADIN [Concomitant]
     Active Substance: WARFARIN SODIUM

REACTIONS (6)
  - Urinary tract infection [None]
  - Loss of consciousness [None]
  - Cardiac arrest [None]
  - Respiratory failure [None]
  - Overdose [None]
  - Sinus bradycardia [None]
